FAERS Safety Report 7536197-4 (Version None)
Quarter: 2011Q2

REPORT INFORMATION
  Report Type: 
  Country: None (occurrence: None)
  Receive Date: 20110608
  Receipt Date: 20110608
  Transmission Date: 20111010
  Serious: Yes (Other)
  Sender: FDA-Public Use
  Company Number: None

PATIENT
  Age: 40 Year
  Sex: Male
  Weight: 77.1115 kg

DRUGS (2)
  1. SERTRALINE HYDROCHLORIDE [Suspect]
     Indication: DEPRESSION
     Dosage: 1 PILL 1 X'S DAY PO
     Route: 048
     Dates: start: 20110410, end: 20110427
  2. SERTRALINE HYDROCHLORIDE [Suspect]
     Indication: ANXIETY
     Dosage: 1 PILL 1 X'S DAY PO
     Route: 048
     Dates: start: 20110410, end: 20110427

REACTIONS (1)
  - TINNITUS [None]
